FAERS Safety Report 4292656-1 (Version None)
Quarter: 2004Q1

REPORT INFORMATION
  Report Type: 
  Country: None (occurrence: None)
  Receive Date: 20040126
  Receipt Date: 20031111
  Transmission Date: 20041129
  Serious: No
  Sender: FDA-Public Use
  Company Number: USA030946549

PATIENT
  Age: 61 Year
  Sex: Female
  Weight: 64 kg

DRUGS (12)
  1. FORTEO [Suspect]
     Indication: OSTEOPOROSIS
     Dosage: 20 UG/DAY
     Dates: start: 20030905
  2. ULTRACET [Concomitant]
  3. BEXTRA [Concomitant]
  4. SYNTHROID [Concomitant]
  5. FLONASE [Concomitant]
  6. ATROVENT [Concomitant]
  7. GUAIFENESIN [Concomitant]
  8. ZYRTEC [Concomitant]
  9. COLAZAL (BALSALAZIDE SODIUM) [Concomitant]
  10. ZOLOFT [Concomitant]
  11. ALBUTEROL [Concomitant]
  12. NEXIUM [Concomitant]

REACTIONS (8)
  - BONE PAIN [None]
  - DECREASED APPETITE [None]
  - FEELING ABNORMAL [None]
  - INJECTION SITE ERYTHEMA [None]
  - INJECTION SITE HAEMORRHAGE [None]
  - INJECTION SITE MASS [None]
  - MUSCLE CRAMP [None]
  - NAUSEA [None]
